FAERS Safety Report 15705328 (Version 2)
Quarter: 2018Q4

REPORT INFORMATION
  Report Type: Spontaneous
  Country: US (occurrence: US)
  Receive Date: 20181210
  Receipt Date: 20181218
  Transmission Date: 20190205
  Serious: Yes (Hospitalization, Other)
  Sender: FDA-Public Use
  Company Number: US-PFIZER INC-2018503761

PATIENT
  Age: 1 Year
  Sex: Female
  Weight: 8.36 kg

DRUGS (1)
  1. BACTERIOSTATIC SODIUM CHLORIDE [Suspect]
     Active Substance: SODIUM CHLORIDE
     Indication: HYPONATRAEMIA
     Dosage: 400 MEQ, UNK (100 CC SODIUM QUADRATE (400 MEQ NAC1) OVER 12 H THROUGH THE NASOGASTRIC TUBE)

REACTIONS (5)
  - Incorrect route of product administration [Unknown]
  - Toxicity to various agents [Recovered/Resolved]
  - Accidental overdose [Recovered/Resolved]
  - Accidental exposure to product by child [Recovered/Resolved]
  - Blood sodium increased [Recovered/Resolved]
